FAERS Safety Report 20109622 (Version 3)
Quarter: 2021Q4

REPORT INFORMATION
  Report Type: Report from Study
  Country: CA (occurrence: None)
  Receive Date: 20211124
  Receipt Date: 20211210
  Transmission Date: 20220303
  Serious: Yes (Hospitalization)
  Sender: FDA-Public Use
  Company Number: 2021A810062

PATIENT
  Sex: Male

DRUGS (1)
  1. CALQUENCE [Suspect]
     Active Substance: ACALABRUTINIB
     Indication: Chronic lymphocytic leukaemia
     Route: 048
     Dates: start: 20211029

REACTIONS (5)
  - Malaise [Unknown]
  - Full blood count decreased [Unknown]
  - Dizziness [Unknown]
  - Haemolytic anaemia [Unknown]
  - Therapy cessation [Unknown]
